FAERS Safety Report 5218614-8 (Version None)
Quarter: 2007Q1

REPORT INFORMATION
  Report Type: 
  Country: None (occurrence: None)
  Receive Date: 20070122
  Receipt Date: 20070111
  Transmission Date: 20070707
  Serious: Yes (Life-Threatening, Disabling, Other)
  Sender: FDA-Public Use
  Company Number: GXKR2007GB00753

PATIENT
  Age: 21 Year
  Sex: Male
  Weight: 69.8 kg

DRUGS (3)
  1. TRAMADOL HCL [Suspect]
     Indication: BACK PAIN
     Dosage: ORAL
     Route: 048
     Dates: start: 20061001, end: 20061101
  2. LANTUS [Concomitant]
  3. NOVORAPID (INSULIN ASPART) [Concomitant]

REACTIONS (1)
  - HYPOGLYCAEMIA [None]
